FAERS Safety Report 4602166-7 (Version None)
Quarter: 2005Q2

REPORT INFORMATION
  Report Type: 
  Country: None (occurrence: None)
  Receive Date: 20050215
  Receipt Date: 20040824
  Transmission Date: 20051028
  Serious: No
  Sender: FDA-Public Use
  Company Number: MC200400383

PATIENT
  Age: 71 Year
  Sex: Female
  Weight: 72.6 kg

DRUGS (4)
  1. ANGIOMAX [Suspect]
     Dosage: 11.3 ML, BOLUS, IV BOLUS
     Route: 040
     Dates: start: 20040512, end: 20040512
  2. ANGIOMAX [Suspect]
     Dosage: 250 (50 ML@26 ML/HR), INTRAVENOUS
     Route: 042
     Dates: start: 20040512, end: 20040512
  3. ACETYLSALICYLIC ACID SRT [Concomitant]
  4. PLAVIX [Concomitant]

REACTIONS (1)
  - RETROPERITONEAL HAEMATOMA [None]
